FAERS Safety Report 19137574 (Version 5)
Quarter: 2022Q1

REPORT INFORMATION
  Report Type: Report from Study
  Country: TH (occurrence: TH)
  Receive Date: 20210414
  Receipt Date: 20220223
  Transmission Date: 20220424
  Serious: Yes (Hospitalization, Other)
  Sender: FDA-Public Use
  Company Number: TH-TAKEDA-2021TUS022046

PATIENT
  Sex: Female

DRUGS (2)
  1. BRENTUXIMAB VEDOTIN [Suspect]
     Active Substance: BRENTUXIMAB VEDOTIN
     Indication: Hodgkin^s disease
     Dosage: 122 MILLIGRAM, Q3WEEKS
     Route: 042
     Dates: start: 20210319
  2. BRENTUXIMAB VEDOTIN [Suspect]
     Active Substance: BRENTUXIMAB VEDOTIN
     Dosage: 80 MILLIGRAM, Q3WEEKS
     Route: 042
     Dates: start: 20220126

REACTIONS (5)
  - White blood cell count decreased [Unknown]
  - Seizure [Unknown]
  - Hypoaesthesia [Unknown]
  - Rash [Unknown]
  - Myalgia [Unknown]
